FAERS Safety Report 19067455 (Version 1)
Quarter: 2021Q1

REPORT INFORMATION
  Report Type: Spontaneous
  Country: US (occurrence: US)
  Receive Date: 20210326
  Receipt Date: 20210326
  Transmission Date: 20210420
  Serious: Yes (Hospitalization)
  Sender: FDA-Public Use
  Company Number: None

PATIENT
  Age: 50 Year
  Sex: Male

DRUGS (1)
  1. CANDIN [Suspect]
     Active Substance: CANDIDA ALBICANS
     Dates: start: 20190218

REACTIONS (6)
  - Pyrexia [None]
  - Injection site swelling [None]
  - Injection site erythema [None]
  - Cellulitis [None]
  - White blood cell count increased [None]
  - Chills [None]

NARRATIVE: CASE EVENT DATE: 20210217
